FAERS Safety Report 9690966 (Version 2)
Quarter: 2013Q4

REPORT INFORMATION
  Report Type: Spontaneous
  Country: DE (occurrence: DE)
  Receive Date: 20131115
  Receipt Date: 20131205
  Transmission Date: 20140711
  Serious: No
  Sender: FDA-Public Use
  Company Number: DE-SA-2013SA115304

PATIENT
  Age: 35 Year
  Sex: Female
  Weight: 47.5 kg

DRUGS (5)
  1. ARAVA [Suspect]
     Indication: RHEUMATOID ARTHRITIS
     Route: 065
     Dates: start: 20110704, end: 20120417
  2. ARAVA [Suspect]
     Indication: RHEUMATOID ARTHRITIS
     Route: 065
     Dates: start: 20100510, end: 20101129
  3. AZATHIOPRINE [Concomitant]
     Indication: RHEUMATOID ARTHRITIS
     Route: 048
     Dates: start: 20120726, end: 20131106
  4. QUENSYL [Concomitant]
     Indication: RHEUMATOID ARTHRITIS
     Route: 048
     Dates: start: 20120726, end: 20131106
  5. PREDNISOLONE [Concomitant]
     Indication: RHEUMATOID ARTHRITIS
     Route: 048
     Dates: start: 20060719

REACTIONS (1)
  - Exposure during pregnancy [Unknown]
